FAERS Safety Report 6528725-2 (Version None)
Quarter: 2009Q4

REPORT INFORMATION
  Report Type: 
  Country: None (occurrence: None)
  Receive Date: 20091224
  Receipt Date: 20091216
  Transmission Date: 20100525
  Serious: Yes (Hospitalization, Other)
  Sender: FDA-Public Use
  Company Number: 2009SP042075

PATIENT
  Age: 39 Year
  Sex: Female
  Weight: 74.3899 kg

DRUGS (8)
  1. TEMOZOLOMIDE [Suspect]
     Indication: METASTATIC MALIGNANT MELANOMA
     Dosage: PO
     Route: 048
     Dates: start: 20091019
  2. BLINDED TEMOZOLOMIDE [Suspect]
     Indication: METASTATIC MALIGNANT MELANOMA
     Dosage: 2 DF;QD;PO
     Route: 048
     Dates: start: 20091019
  3. TRAMADOL [Concomitant]
  4. SUMATRIPTAN [Concomitant]
  5. PROCHLORPERAZINE [Concomitant]
  6. EDISYLATE [Concomitant]
  7. ONDANSETRON [Concomitant]
  8. PROMETHAZINE [Concomitant]

REACTIONS (4)
  - FATIGUE [None]
  - MALAISE [None]
  - NAUSEA [None]
  - VOMITING [None]
